FAERS Safety Report 4933924-7 (Version None)
Quarter: 2006Q1

REPORT INFORMATION
  Report Type: 
  Country: None (occurrence: None)
  Receive Date: 20060303
  Receipt Date: 20060216
  Transmission Date: 20060701
  Serious: Yes (Death, Hospitalization, Other)
  Sender: FDA-Public Use
  Company Number: US-2005-009610

PATIENT
  Age: 54 Year
  Sex: Male
  Weight: 86.1 kg

DRUGS (16)
  1. BETASERON [Suspect]
     Indication: RELAPSING-REMITTING MULTIPLE SCLEROSIS
     Dosage: UNK MIU, UNK, SUBCUTANEOUS
     Route: 058
     Dates: start: 19940101, end: 20050107
  2. MULTIVITAMINS (RETINOL, PANTHENOL) [Concomitant]
  3. BACLOFEN [Concomitant]
  4. COREG [Concomitant]
  5. DETROL - SLOW RELEASE (TOLTERODINE L-TARTRATE) [Concomitant]
  6. EFFEXOR XR [Concomitant]
  7. DEMADEX [Concomitant]
  8. ZOLOFT [Concomitant]
  9. NEURONTIN [Concomitant]
  10. KLONOPIN [Concomitant]
  11. COUMADIN [Concomitant]
  12. MACRODANTIN [Concomitant]
  13. LEVAQUIN [Concomitant]
  14. MIRALAX [Concomitant]
  15. PROVIGIL [Concomitant]
  16. K-DUR 10 [Concomitant]

REACTIONS (9)
  - CARDIAC FAILURE CONGESTIVE [None]
  - CARDIOMYOPATHY [None]
  - CONDITION AGGRAVATED [None]
  - ENCEPHALOPATHY [None]
  - FLUID OVERLOAD [None]
  - MULTIPLE SCLEROSIS [None]
  - PATHOGEN RESISTANCE [None]
  - PENILE ULCERATION [None]
  - SEPSIS [None]
